FAERS Safety Report 4680009-3 (Version None)
Quarter: 2005Q2

REPORT INFORMATION
  Report Type: 
  Country: None (occurrence: None)
  Receive Date: 20050602
  Receipt Date: 20050531
  Transmission Date: 20051028
  Serious: Yes (Other)
  Sender: FDA-Public Use
  Company Number: CA-GLAXOSMITHKLINE-A0560662A

PATIENT
  Age: 48 Year
  Sex: Male

DRUGS (5)
  1. PARNATE [Suspect]
     Indication: DRUG USE FOR UNKNOWN INDICATION
     Dosage: 700MG PER DAY
     Route: 065
  2. ATENOLOL [Concomitant]
     Route: 065
  3. OLANZAPINE [Concomitant]
     Route: 065
  4. TEMAZEPAM [Concomitant]
     Route: 065
  5. TRIAZOLAM [Concomitant]
     Route: 065

REACTIONS (4)
  - CONFUSIONAL STATE [None]
  - HYPERHIDROSIS [None]
  - SOMNOLENCE [None]
  - SUICIDAL IDEATION [None]
